FAERS Safety Report 6739208-9 (Version None)
Quarter: 2010Q2

REPORT INFORMATION
  Report Type: 
  Country: None (occurrence: None)
  Receive Date: 20100520
  Receipt Date: 20100507
  Transmission Date: 20101027
  Serious: Yes (Other)
  Sender: FDA-Public Use
  Company Number: 2010AP000978

PATIENT
  Age: 13 Year
  Sex: Female

DRUGS (3)
  1. RISPERIDONE [Suspect]
     Indication: PSYCHOTIC DISORDER
     Dosage: 2.5 MG;QD ; 3.5 MG;QD ; 05 MG;BID
  2. ARIPIPRAZOLE [Concomitant]
  3. BENZATROPINE [Concomitant]

REACTIONS (11)
  - AMENORRHOEA [None]
  - BRADYKINESIA [None]
  - COGNITIVE DISORDER [None]
  - EDUCATIONAL PROBLEM [None]
  - HYPERPROLACTINAEMIA [None]
  - MENSTRUATION IRREGULAR [None]
  - MUSCULOSKELETAL STIFFNESS [None]
  - PARKINSONISM [None]
  - SEDATION [None]
  - VAGINAL HAEMORRHAGE [None]
  - WEIGHT INCREASED [None]
